FAERS Safety Report 13381816 (Version 1)
Quarter: 2017Q1

REPORT INFORMATION
  Report Type: Spontaneous
  Country: PT (occurrence: PT)
  Receive Date: 20170329
  Receipt Date: 20170329
  Transmission Date: 20170429
  Serious: Yes (Other)
  Sender: FDA-Public Use
  Company Number: PHHY2017PT043626

PATIENT
  Age: 82 Year
  Sex: Female

DRUGS (3)
  1. BENZYLPENICILLIN [Suspect]
     Active Substance: PENICILLIN G
     Indication: PRODUCT USED FOR UNKNOWN INDICATION
     Route: 065
  2. AMOXICILLIN. [Suspect]
     Active Substance: AMOXICILLIN
     Indication: PRODUCT USED FOR UNKNOWN INDICATION
     Route: 065
  3. AMPICILLIN [Suspect]
     Active Substance: AMPICILLIN
     Indication: PRODUCT USED FOR UNKNOWN INDICATION
     Route: 065

REACTIONS (3)
  - Drug cross-reactivity [Unknown]
  - Skin test positive [Unknown]
  - Drug reaction with eosinophilia and systemic symptoms [Unknown]

NARRATIVE: CASE EVENT DATE: 2008
